FAERS Safety Report 15261366 (Version 1)
Quarter: 2018Q3

REPORT INFORMATION
  Report Type: Spontaneous
  Country: GB (occurrence: GB)
  Receive Date: 20180809
  Receipt Date: 20180809
  Transmission Date: 20181010
  Serious: Yes (Other)
  Sender: FDA-Public Use
  Company Number: GB-NOVOPROD-614802

PATIENT
  Sex: Female

DRUGS (1)
  1. SAXENDA [Suspect]
     Active Substance: LIRAGLUTIDE
     Indication: PRODUCT USED FOR UNKNOWN INDICATION
     Dosage: 0.60,MG
     Route: 065
     Dates: start: 20180710

REACTIONS (4)
  - Axillary mass [Recovering/Resolving]
  - Abdominal pain lower [Recovering/Resolving]
  - Dizziness [Recovering/Resolving]
  - Increased appetite [Recovering/Resolving]

NARRATIVE: CASE EVENT DATE: 201807
